FAERS Safety Report 8191960-4 (Version None)
Quarter: 2012Q1

REPORT INFORMATION
  Report Type: 
  Country: None (occurrence: None)
  Receive Date: 20120307
  Receipt Date: 20120301
  Transmission Date: 20120608
  Serious: Yes (Other)
  Sender: FDA-Public Use
  Company Number: PHEH2010US03876

PATIENT
  Sex: Male

DRUGS (47)
  1. ZOMETA [Suspect]
  2. NEOSPORIN [Concomitant]
  3. HEPARIN [Concomitant]
  4. INDIGO CARMINE [Concomitant]
  5. HYTRIN [Concomitant]
  6. CYMBALTA [Concomitant]
  7. SENOKOT [Concomitant]
  8. CLONAZEPAM [Concomitant]
  9. BACITRACIN [Concomitant]
  10. MARCAINE [Concomitant]
  11. METHADON HCL TAB [Concomitant]
  12. EFFEXOR [Concomitant]
  13. METHADONE HCL [Concomitant]
  14. REGELAN [Concomitant]
  15. TEMAZEPAM [Concomitant]
  16. KANTREX [Concomitant]
  17. GENTAMICIN [Concomitant]
  18. KETOCONAZOLE [Concomitant]
  19. PRILOSEC [Concomitant]
  20. NEXIUM [Concomitant]
  21. ALLEGRA [Concomitant]
  22. LEXAPRO [Concomitant]
  23. SENNA [Concomitant]
  24. WARFARIN SODIUM [Concomitant]
  25. VERSED [Concomitant]
  26. ZYVOX [Concomitant]
  27. ANCEF [Concomitant]
  28. ZOCOR [Concomitant]
  29. MORPHINE [Concomitant]
  30. VANCOMYCIN [Concomitant]
  31. PEPCID [Concomitant]
  32. ANTIVERT [Concomitant]
  33. CHEMOTHERAPEUTICS [Concomitant]
  34. CARVEDILOL [Concomitant]
  35. COUMADIN [Concomitant]
  36. OXYCODONE HCL [Concomitant]
  37. HYDROCORTISONE [Concomitant]
  38. INDOCIN [Concomitant]
  39. SOMA [Concomitant]
  40. CYTOTEC [Concomitant]
  41. ZOFRAN [Concomitant]
  42. HYZAAR [Concomitant]
  43. PROMETHAZINE [Concomitant]
  44. FLUNISOLIDE [Concomitant]
  45. PERCOCET [Concomitant]
  46. AREDIA [Suspect]
  47. MISOPROSTOL [Concomitant]

REACTIONS (33)
  - DEFORMITY [None]
  - OSTEOMYELITIS [None]
  - HYPERTENSION [None]
  - CEREBROVASCULAR ACCIDENT [None]
  - DIVERTICULUM [None]
  - METASTASES TO BONE [None]
  - ANHEDONIA [None]
  - PATHOLOGICAL FRACTURE [None]
  - NEURITIS [None]
  - HAEMORRHAGIC ANAEMIA [None]
  - PAIN IN EXTREMITY [None]
  - OSTEONECROSIS OF JAW [None]
  - SPINAL CORD COMPRESSION [None]
  - PROSTATE CANCER METASTATIC [None]
  - CATARACT [None]
  - VISUAL IMPAIRMENT [None]
  - DENTAL CARIES [None]
  - PAIN [None]
  - ANXIETY [None]
  - BONE LOSS [None]
  - NEUROPATHY PERIPHERAL [None]
  - HIP FRACTURE [None]
  - AMNESIA [None]
  - CONFUSIONAL STATE [None]
  - BACK PAIN [None]
  - DYSPNOEA [None]
  - DISABILITY [None]
  - TOBACCO ABUSE [None]
  - SLEEP APNOEA SYNDROME [None]
  - ARTHRALGIA [None]
  - MITRAL VALVE INCOMPETENCE [None]
  - VENTRICULAR HYPERTROPHY [None]
  - TRICUSPID VALVE INCOMPETENCE [None]
